FAERS Safety Report 14054802 (Version 1)
Quarter: 2017Q4

REPORT INFORMATION
  Report Type: Spontaneous
  Country: US (occurrence: None)
  Receive Date: 20171006
  Receipt Date: 20171006
  Transmission Date: 20180321
  Serious: Yes (Other)
  Sender: FDA-Public Use
  Company Number: None

PATIENT
  Age: 32 Year
  Sex: Female

DRUGS (1)
  1. LUPRON DEPOT [Suspect]
     Active Substance: LEUPROLIDE ACETATE
     Indication: ENDOMETRIOSIS
     Dosage: FREQUENCY - EVERY 12 WEEKS
     Route: 030
     Dates: start: 20170510

REACTIONS (3)
  - Endometriosis [None]
  - Migraine [None]
  - Injection site reaction [None]

NARRATIVE: CASE EVENT DATE: 20170510
